FAERS Safety Report 24929103 (Version 1)
Quarter: 2025Q1

REPORT INFORMATION
  Report Type: Spontaneous
  Country: CA (occurrence: CA)
  Receive Date: 20250205
  Receipt Date: 20250205
  Transmission Date: 20250409
  Serious: Yes (Death, Life-Threatening, Hospitalization, Disabling, Other)
  Sender: PURDUE
  Company Number: CA-PURDUE-USA-2025-0315074

PATIENT
  Age: 44 Year
  Sex: Female
  Weight: 60 kg

DRUGS (35)
  1. MORPHINE SULFATE [Suspect]
     Active Substance: MORPHINE SULFATE
     Indication: Rheumatoid arthritis
     Route: 048
  2. CODEINE [Suspect]
     Active Substance: CODEINE
     Indication: Rheumatoid arthritis
     Route: 065
  3. ACETAMINOPHEN AND CODEINE [Suspect]
     Active Substance: ACETAMINOPHEN\CODEINE PHOSPHATE
     Indication: Product used for unknown indication
     Route: 065
  4. ACETAMINOPHEN AND CODEINE [Suspect]
     Active Substance: ACETAMINOPHEN\CODEINE PHOSPHATE
     Route: 065
  5. ACETAMINOPHEN AND CODEINE [Suspect]
     Active Substance: ACETAMINOPHEN\CODEINE PHOSPHATE
     Route: 048
  6. ASACOL [Suspect]
     Active Substance: MESALAMINE
     Indication: Crohn^s disease
     Route: 065
  7. CALCIUM [Suspect]
     Active Substance: CALCIUM
     Indication: Product used for unknown indication
     Route: 065
  8. DIPHENHYDRAMINE [Suspect]
     Active Substance: DIPHENHYDRAMINE
     Indication: Product used for unknown indication
     Route: 065
  9. HYALURONIDASE [Suspect]
     Active Substance: HYALURONIDASE
     Indication: Product used for unknown indication
     Route: 065
  10. HYDROCORTISONE [Suspect]
     Active Substance: HYDROCORTISONE
     Indication: Rheumatoid arthritis
     Route: 048
  11. HYDROCORTISONE [Suspect]
     Active Substance: HYDROCORTISONE
     Route: 003
  12. HYDROCORTISONE [Suspect]
     Active Substance: HYDROCORTISONE
     Route: 065
  13. HYDROCORTISONE [Suspect]
     Active Substance: HYDROCORTISONE
     Route: 065
  14. HYDROCORTISONE [Suspect]
     Active Substance: HYDROCORTISONE
     Route: 048
  15. HYDROCORTISONE [Suspect]
     Active Substance: HYDROCORTISONE
     Route: 058
  16. HYDROCORTISONE [Suspect]
     Active Substance: HYDROCORTISONE
     Route: 058
  17. LANSOPRAZOLE [Suspect]
     Active Substance: LANSOPRAZOLE
     Indication: Rheumatoid arthritis
     Route: 065
  18. LANSOPRAZOLE [Suspect]
     Active Substance: LANSOPRAZOLE
     Route: 048
  19. MAGNESIUM [Suspect]
     Active Substance: MAGNESIUM
     Indication: Product used for unknown indication
     Route: 048
  20. MAGNESIUM [Suspect]
     Active Substance: MAGNESIUM
     Route: 065
  21. MESALAMINE [Suspect]
     Active Substance: MESALAMINE
     Indication: Crohn^s disease
     Route: 065
  22. MESALAMINE [Suspect]
     Active Substance: MESALAMINE
     Route: 048
  23. METHOTREXATE SODIUM [Suspect]
     Active Substance: METHOTREXATE SODIUM
     Indication: Rheumatoid arthritis
     Route: 048
  24. METHOTREXATE SODIUM [Suspect]
     Active Substance: METHOTREXATE SODIUM
     Route: 048
  25. METHOTREXATE SODIUM [Suspect]
     Active Substance: METHOTREXATE SODIUM
     Route: 048
  26. METHOTREXATE SODIUM [Suspect]
     Active Substance: METHOTREXATE SODIUM
     Route: 048
  27. METHOTREXATE SODIUM [Suspect]
     Active Substance: METHOTREXATE SODIUM
     Route: 016
  28. METHOTREXATE SODIUM [Suspect]
     Active Substance: METHOTREXATE SODIUM
     Route: 065
  29. METHOTREXATE SODIUM [Suspect]
     Active Substance: METHOTREXATE SODIUM
     Route: 065
  30. PANTOPRAZOLE SODIUM [Suspect]
     Active Substance: PANTOPRAZOLE SODIUM
     Indication: Rheumatoid arthritis
     Route: 048
  31. PANTOPRAZOLE [Suspect]
     Active Substance: PANTOPRAZOLE
     Indication: Product used for unknown indication
     Route: 065
  32. PREVACID [Suspect]
     Active Substance: LANSOPRAZOLE
     Indication: Product used for unknown indication
     Route: 065
  33. PREVACID [Suspect]
     Active Substance: LANSOPRAZOLE
     Route: 048
  34. RAMIPRIL [Suspect]
     Active Substance: RAMIPRIL
     Indication: Product used for unknown indication
     Route: 065
  35. RITUXIMAB [Suspect]
     Active Substance: RITUXIMAB
     Indication: Product used for unknown indication
     Route: 065

REACTIONS (41)
  - Abdominal pain upper [Fatal]
  - Bursitis [Fatal]
  - C-reactive protein abnormal [Fatal]
  - Confusional state [Fatal]
  - Diarrhoea [Fatal]
  - Dizziness [Fatal]
  - Dry mouth [Fatal]
  - Dyspepsia [Fatal]
  - Facet joint syndrome [Fatal]
  - Fatigue [Fatal]
  - Gait disturbance [Fatal]
  - Glossodynia [Fatal]
  - Helicobacter infection [Fatal]
  - Infusion related reaction [Fatal]
  - Injury [Fatal]
  - Insomnia [Fatal]
  - Irritable bowel syndrome [Fatal]
  - Joint range of motion decreased [Fatal]
  - Knee arthroplasty [Fatal]
  - Lower limb fracture [Fatal]
  - Malaise [Fatal]
  - Nausea [Fatal]
  - Osteoporosis [Fatal]
  - Pain [Fatal]
  - Pain in extremity [Fatal]
  - Pericarditis [Fatal]
  - Peripheral venous disease [Fatal]
  - Pneumonia [Fatal]
  - Pregnancy [Fatal]
  - Pulmonary fibrosis [Fatal]
  - Rash [Fatal]
  - Rheumatoid factor positive [Fatal]
  - Road traffic accident [Fatal]
  - Sciatica [Fatal]
  - Sinusitis [Fatal]
  - Swollen joint count increased [Fatal]
  - Synovitis [Fatal]
  - Urticaria [Fatal]
  - Vomiting [Fatal]
  - Walking aid user [Fatal]
  - Wheezing [Fatal]
